FAERS Safety Report 7756831-3 (Version None)
Quarter: 2011Q3

REPORT INFORMATION
  Report Type: 
  Country: None (occurrence: None)
  Receive Date: 20110916
  Receipt Date: 20100120
  Transmission Date: 20111222
  Serious: Yes (Other)
  Sender: FDA-Public Use
  Company Number: US-ROCHE-680705

PATIENT
  Sex: Female
  Weight: 71.7 kg

DRUGS (3)
  1. CAPECITABINE [Suspect]
     Dosage: 25% DOSE REDUCTION
     Route: 048
     Dates: start: 20091020
  2. ZOFRAN [Concomitant]
     Indication: NAUSEA
     Route: 048
  3. CAPECITABINE [Suspect]
     Dosage: TWO WEEKS ON ONE WEEK OFF
     Route: 048
     Dates: start: 20090808

REACTIONS (4)
  - DRUG EFFECT DECREASED [None]
  - NEOPLASM MALIGNANT [None]
  - PALMAR-PLANTAR ERYTHRODYSAESTHESIA SYNDROME [None]
  - ANXIETY [None]
